FAERS Safety Report 6531074-X (Version None)
Quarter: 2010Q1

REPORT INFORMATION
  Report Type: 
  Country: None (occurrence: None)
  Receive Date: 20100108
  Receipt Date: 20091102
  Transmission Date: 20100710
  Serious: No
  Sender: FDA-Public Use
  Company Number: A0834024A

PATIENT
  Sex: Female

DRUGS (6)
  1. LOVAZA [Suspect]
     Dosage: 2G TWICE PER DAY
     Route: 048
     Dates: start: 20071101
  2. NEXIUM [Concomitant]
  3. EVISTA [Concomitant]
  4. SYNTHROID [Concomitant]
  5. CRESTOR [Concomitant]
  6. ALENDRONATE SODIUM [Concomitant]

REACTIONS (1)
  - DYSPEPSIA [None]
